FAERS Safety Report 7042788-X (Version None)
Quarter: 2010Q4

REPORT INFORMATION
  Report Type: 
  Country: None (occurrence: None)
  Receive Date: 20101013
  Receipt Date: 20100524
  Transmission Date: 20110411
  Serious: No
  Sender: FDA-Public Use
  Company Number: US-ASTRAZENECA-2010SE23889

PATIENT
  Sex: Male

DRUGS (10)
  1. SYMBICORT [Suspect]
     Indication: CHRONIC OBSTRUCTIVE PULMONARY DISEASE
     Dosage: 160/4.5, TOTAL DAILY DOSE: 640 MCG
     Route: 055
     Dates: start: 20100511, end: 20100520
  2. FLOMAX [Concomitant]
     Route: 065
  3. PLAVIX [Concomitant]
     Route: 065
  4. COREG [Concomitant]
     Route: 065
  5. LOSARTAN [Concomitant]
     Route: 065
  6. HYDROCHLOROT [Concomitant]
     Route: 065
  7. SPIRIVA [Concomitant]
     Route: 065
  8. PRAVASTATIN [Concomitant]
     Route: 065
  9. FISH OIL [Concomitant]
     Route: 065
  10. PROVENTIL [Concomitant]
     Route: 065

REACTIONS (11)
  - ABDOMINAL DISCOMFORT [None]
  - DRUG DOSE OMISSION [None]
  - DYSPHAGIA [None]
  - DYSPNOEA [None]
  - FEELING ABNORMAL [None]
  - GLOSSODYNIA [None]
  - HEADACHE [None]
  - MIGRAINE [None]
  - NAUSEA [None]
  - OROPHARYNGEAL PAIN [None]
  - PHARYNGEAL OEDEMA [None]
